FAERS Safety Report 8545277-6 (Version None)
Quarter: 2012Q3

REPORT INFORMATION
  Report Type: 
  Country: None (occurrence: None)
  Receive Date: 20120727
  Receipt Date: 20120726
  Transmission Date: 20120928
  Serious: Yes (Other)
  Sender: FDA-Public Use
  Company Number: US-FRI-1000036877

PATIENT
  Sex: Female

DRUGS (5)
  1. AMLODIPINE [Concomitant]
     Indication: HYPERTENSION
     Dosage: 5 MG BID
     Route: 048
  2. CIPROFLAXACIN [Suspect]
     Indication: URINARY TRACT INFECTION
     Dosage: 500 MG BID
     Route: 048
     Dates: start: 20120518, end: 20120523
  3. VITAMIN D [Concomitant]
     Dosage: 2000 MG QD
     Route: 048
  4. BYSTOLIC [Suspect]
     Indication: HYPERTENSION
     Dosage: 5 MG
     Route: 048
     Dates: start: 20110331
  5. CALCIUM [Concomitant]
     Dosage: 600 MG BID
     Dates: start: 20120626

REACTIONS (5)
  - PRURITUS [None]
  - URINARY TRACT INFECTION [None]
  - CHILLS [None]
  - JOINT SWELLING [None]
  - DECREASED APPETITE [None]
